FAERS Safety Report 17211586 (Version 1)
Quarter: 2019Q4

REPORT INFORMATION
  Report Type: Spontaneous
  Country: SE (occurrence: SE)
  Receive Date: 20191229
  Receipt Date: 20191229
  Transmission Date: 20200122
  Serious: Yes (Hospitalization)
  Sender: FDA-Public Use
  Company Number: SE-009507513-1912SWE010030

PATIENT
  Age: 47 Year
  Sex: Male

DRUGS (3)
  1. MIRTAZAPINE. [Suspect]
     Active Substance: MIRTAZAPINE
     Dosage: 30-35 PIECES OF MIRTAZAPINE
     Route: 048
     Dates: start: 20190116, end: 20190116
  2. PROPAVAN [Suspect]
     Active Substance: PROPIOMAZINE
     Dosage: 20 PROPAVAN
     Route: 048
     Dates: start: 20190116, end: 20190116
  3. MELATONIN [Suspect]
     Active Substance: MELATONIN
     Dosage: 15-30 PIECES OF MELATONIN
     Route: 048
     Dates: start: 20190116, end: 20190116

REACTIONS (3)
  - Somnolence [Unknown]
  - Intentional self-injury [Unknown]
  - Intentional overdose [Unknown]

NARRATIVE: CASE EVENT DATE: 20190117
